FAERS Safety Report 14854762 (Version 2)
Quarter: 2018Q3

REPORT INFORMATION
  Report Type: Report from Study
  Country: DE (occurrence: DE)
  Receive Date: 20180507
  Receipt Date: 20180912
  Transmission Date: 20181010
  Serious: Yes (Other)
  Sender: FDA-Public Use
  Company Number: DE-MYLANLABS-2018M1029311

PATIENT
  Sex: Female
  Weight: 88 kg

DRUGS (6)
  1. KISQALI [Suspect]
     Active Substance: RIBOCICLIB
     Dosage: 400 MG, QD
     Route: 048
     Dates: start: 20180301
  2. KISQALI [Suspect]
     Active Substance: RIBOCICLIB
     Dosage: 600 MG(200X3), QD
     Route: 048
     Dates: start: 20180118, end: 20180208
  3. ANASTROZOLE. [Suspect]
     Active Substance: ANASTROZOLE
     Indication: BREAST CANCER METASTATIC
     Dosage: 1 MG, QD
     Route: 048
     Dates: start: 20180118
  4. ANASTROZOLE. [Suspect]
     Active Substance: ANASTROZOLE
     Dosage: UNK
  5. KISQALI [Suspect]
     Active Substance: RIBOCICLIB
     Indication: BREAST CANCER METASTATIC
     Dosage: 200 MG, QD
     Route: 048
     Dates: start: 20180118, end: 20180208
  6. KISQALI [Suspect]
     Active Substance: RIBOCICLIB
     Dosage: 600 MG(200X3), QD
     Route: 048
     Dates: start: 20180216, end: 20180228

REACTIONS (2)
  - Leukopenia [Unknown]
  - Neutropenia [Recovering/Resolving]

NARRATIVE: CASE EVENT DATE: 20180208
